FAERS Safety Report 6095338-9 (Version None)
Quarter: 2009Q1

REPORT INFORMATION
  Report Type: 
  Country: None (occurrence: None)
  Receive Date: 20090227
  Receipt Date: 20080311
  Transmission Date: 20090719
  Serious: No
  Sender: FDA-Public Use
  Company Number: A0714610A

PATIENT
  Age: 3 Year
  Sex: Male

DRUGS (4)
  1. LAMICTAL [Suspect]
     Dosage: 12.5MG TWICE PER DAY
     Route: 048
     Dates: start: 20080303
  2. DEFLAZACORT [Concomitant]
  3. FLOVENT [Concomitant]
  4. ZAPONEX [Concomitant]

REACTIONS (5)
  - EYE SWELLING [None]
  - LIP SWELLING [None]
  - MEDICATION ERROR [None]
  - OCULAR HYPERAEMIA [None]
  - RASH MACULAR [None]
